FAERS Safety Report 18562235 (Version 2)
Quarter: 2020Q4

REPORT INFORMATION
  Report Type: Spontaneous
  Country: PL (occurrence: PL)
  Receive Date: 20201201
  Receipt Date: 20201208
  Transmission Date: 20210114
  Serious: Yes (Other)
  Sender: FDA-Public Use
  Company Number: PL-ROCHE-2722748

PATIENT
  Age: 41 Year
  Sex: Male
  Weight: 97 kg

DRUGS (16)
  1. BIODACYNA [Concomitant]
     Active Substance: AMIKACIN SULFATE
  2. TRIFAS [Concomitant]
  3. LAKCID FORTE [Concomitant]
  4. PANPRAZOX [Concomitant]
  5. TOCILIZUMAB. [Suspect]
     Active Substance: TOCILIZUMAB
     Indication: COVID-19 PNEUMONIA
     Route: 065
     Dates: start: 20201118, end: 20201118
  6. CLEXANE [Concomitant]
     Active Substance: ENOXAPARIN SODIUM
  7. DEXAVEN [Concomitant]
     Active Substance: DEXAMETHASONE
  8. DICLOBERL RETARD [Concomitant]
  9. TAZOBACTAM [Concomitant]
     Active Substance: TAZOBACTAM
  10. OPTILYTE [Concomitant]
     Active Substance: CALCIUM CHLORIDE\MAGNESIUM CHLORIDE\POTASSIUM CHLORIDE\SODIUM ACETATE\SODIUM CHLORIDE\SODIUM CITRATE
  11. ALMIDEN [Concomitant]
  12. AMERTIL [Concomitant]
     Active Substance: CETIRIZINE HYDROCHLORIDE
  13. PIPERACILLIN. [Concomitant]
     Active Substance: PIPERACILLIN SODIUM
  14. POLPRIL [Concomitant]
     Active Substance: RAMIPRIL
  15. HEPAREGEN [Concomitant]
  16. PARACETAMOL [Concomitant]
     Active Substance: ACETAMINOPHEN

REACTIONS (3)
  - Erythema [Recovering/Resolving]
  - Alanine aminotransferase increased [Recovering/Resolving]
  - Localised oedema [Recovering/Resolving]

NARRATIVE: CASE EVENT DATE: 20201119
